FAERS Safety Report 23721409 (Version 1)
Quarter: 2024Q2

REPORT INFORMATION
  Report Type: Spontaneous
  Country: AU (occurrence: AU)
  Receive Date: 20240409
  Receipt Date: 20240409
  Transmission Date: 20240716
  Serious: Yes (Other)
  Sender: FDA-Public Use
  Company Number: AU-MLMSERVICE-20221205-3966281-1

PATIENT
  Age: 16 Year
  Sex: Male

DRUGS (8)
  1. RISPERDAL [Suspect]
     Active Substance: RISPERIDONE
     Indication: Irritability
     Dosage: FOR APPROXIMATELY 3 YEARS
     Route: 065
  2. RISPERDAL [Suspect]
     Active Substance: RISPERIDONE
     Indication: Anger
  3. MELATONIN [Concomitant]
     Active Substance: MELATONIN
     Indication: Irritability
     Dosage: MODIFIED RELEASE
  4. MELATONIN [Concomitant]
     Active Substance: MELATONIN
     Indication: Anger
  5. TOPIRAMATE [Concomitant]
     Active Substance: TOPIRAMATE
     Indication: Irritability
  6. TOPIRAMATE [Concomitant]
     Active Substance: TOPIRAMATE
     Indication: Anger
  7. FLUOXETINE [Concomitant]
     Active Substance: FLUOXETINE HYDROCHLORIDE
     Indication: Irritability
  8. FLUOXETINE [Concomitant]
     Active Substance: FLUOXETINE HYDROCHLORIDE
     Indication: Anger

REACTIONS (3)
  - Weight increased [Unknown]
  - Rebound effect [Unknown]
  - Drug ineffective [Unknown]
